FAERS Safety Report 25453247 (Version 1)
Quarter: 2025Q2

REPORT INFORMATION
  Report Type: Spontaneous
  Country: CN (occurrence: CN)
  Receive Date: 20250618
  Receipt Date: 20250618
  Transmission Date: 20250717
  Serious: Yes (Other)
  Sender: BEIGENE
  Company Number: CN-BEIGENE-BGN-2025-009456

PATIENT
  Age: 49 Year
  Weight: 35 kg

DRUGS (32)
  1. TISLELIZUMAB [Suspect]
     Active Substance: TISLELIZUMAB
     Indication: Gastric cancer
  2. TISLELIZUMAB [Suspect]
     Active Substance: TISLELIZUMAB
  3. TISLELIZUMAB [Suspect]
     Active Substance: TISLELIZUMAB
     Route: 041
  4. TISLELIZUMAB [Suspect]
     Active Substance: TISLELIZUMAB
     Route: 041
  5. TISLELIZUMAB [Suspect]
     Active Substance: TISLELIZUMAB
  6. TISLELIZUMAB [Suspect]
     Active Substance: TISLELIZUMAB
  7. TISLELIZUMAB [Suspect]
     Active Substance: TISLELIZUMAB
     Route: 041
  8. TISLELIZUMAB [Suspect]
     Active Substance: TISLELIZUMAB
     Route: 041
  9. TISLELIZUMAB [Suspect]
     Active Substance: TISLELIZUMAB
  10. TISLELIZUMAB [Suspect]
     Active Substance: TISLELIZUMAB
     Route: 041
  11. TISLELIZUMAB [Suspect]
     Active Substance: TISLELIZUMAB
  12. TISLELIZUMAB [Suspect]
     Active Substance: TISLELIZUMAB
     Route: 041
  13. CAPECITABINE [Suspect]
     Active Substance: CAPECITABINE
     Indication: Gastric cancer
     Dosage: 1 GRAM, BID
  14. CAPECITABINE [Suspect]
     Active Substance: CAPECITABINE
     Dosage: 1 GRAM, BID
     Route: 048
  15. CAPECITABINE [Suspect]
     Active Substance: CAPECITABINE
     Dosage: 1 GRAM, BID
  16. CAPECITABINE [Suspect]
     Active Substance: CAPECITABINE
     Dosage: 1 GRAM, BID
     Route: 048
  17. CAPECITABINE [Suspect]
     Active Substance: CAPECITABINE
     Dosage: 1 GRAM, BID
  18. CAPECITABINE [Suspect]
     Active Substance: CAPECITABINE
     Dosage: 1 GRAM, BID
     Route: 048
  19. CAPECITABINE [Suspect]
     Active Substance: CAPECITABINE
     Dosage: 1 GRAM, BID
  20. CAPECITABINE [Suspect]
     Active Substance: CAPECITABINE
     Dosage: 1 GRAM, BID
     Route: 048
  21. PACLITAXEL [Suspect]
     Active Substance: PACLITAXEL
     Indication: Gastric cancer
  22. PACLITAXEL [Suspect]
     Active Substance: PACLITAXEL
     Route: 041
  23. PACLITAXEL [Suspect]
     Active Substance: PACLITAXEL
  24. PACLITAXEL [Suspect]
     Active Substance: PACLITAXEL
     Route: 033
  25. PACLITAXEL [Suspect]
     Active Substance: PACLITAXEL
  26. PACLITAXEL [Suspect]
     Active Substance: PACLITAXEL
     Route: 041
  27. PACLITAXEL [Suspect]
     Active Substance: PACLITAXEL
  28. PACLITAXEL [Suspect]
     Active Substance: PACLITAXEL
     Route: 033
  29. PACLITAXEL [Suspect]
     Active Substance: PACLITAXEL
  30. PACLITAXEL [Suspect]
     Active Substance: PACLITAXEL
     Route: 041
  31. PACLITAXEL [Suspect]
     Active Substance: PACLITAXEL
  32. PACLITAXEL [Suspect]
     Active Substance: PACLITAXEL
     Route: 033

REACTIONS (2)
  - Myelosuppression [Recovering/Resolving]
  - Hepatic function abnormal [Recovering/Resolving]
